FAERS Safety Report 24075397 (Version 1)
Quarter: 2024Q3

REPORT INFORMATION
  Report Type: Report from Study
  Country: GB (occurrence: GB)
  Receive Date: 20240710
  Receipt Date: 20240710
  Transmission Date: 20241017
  Serious: Yes (Other)
  Sender: SANDOZ
  Company Number: GB-SANDOZ-SDZ2024GB063965

PATIENT
  Sex: Female

DRUGS (1)
  1. HYRIMOZ [Suspect]
     Active Substance: ADALIMUMAB-ADAZ
     Indication: Psoriatic arthropathy
     Dosage: 40 MG, Q2W,40MG/0.4ML SOLUTION FOR INJECTION PRE-FILLED PENS (SANDOZ LTD) 2 PRE-FILLED  DISPOSABLE I
     Route: 058

REACTIONS (4)
  - Agonal respiration [Unknown]
  - Product supply issue [Unknown]
  - Product use issue [Unknown]
  - Therapy change [Unknown]
